FAERS Safety Report 12509044 (Version 1)
Quarter: 2016Q2

REPORT INFORMATION
  Report Type: Spontaneous
  Country: IT (occurrence: IT)
  Receive Date: 20160629
  Receipt Date: 20160629
  Transmission Date: 20160815
  Serious: Yes (Other)
  Sender: FDA-Public Use
  Company Number: IT-ELI_LILLY_AND_COMPANY-IT201606009673

PATIENT
  Age: 71 Year
  Sex: Male
  Weight: 68 kg

DRUGS (4)
  1. ERBITUX [Suspect]
     Active Substance: CETUXIMAB
     Indication: ADENOCARCINOMA OF COLON
     Dosage: 330 MG, CYCLICAL
     Route: 042
     Dates: start: 20150723
  2. FLUOROURACILE [Suspect]
     Active Substance: FLUOROURACIL
     Dosage: 4300 MG, CYCLICAL
     Route: 040
  3. LEDERFOLIN [Concomitant]
     Active Substance: LEUCOVORIN CALCIUM
     Indication: ADENOCARCINOMA OF COLON
     Dosage: 350 MG, UNKNOWN
     Route: 042
     Dates: start: 20150723
  4. FLUOROURACILE [Suspect]
     Active Substance: FLUOROURACIL
     Indication: ADENOCARCINOMA OF COLON
     Dosage: 700 MG, CYCLICAL
     Route: 040
     Dates: start: 20150723

REACTIONS (1)
  - Paraesthesia [Not Recovered/Not Resolved]

NARRATIVE: CASE EVENT DATE: 20160114
